FAERS Safety Report 16059217 (Version 1)
Quarter: 2019Q1

REPORT INFORMATION
  Report Type: Report from Study
  Country: FR (occurrence: FR)
  Receive Date: 20190311
  Receipt Date: 20190311
  Transmission Date: 20190418
  Serious: Yes (Other)
  Sender: FDA-Public Use
  Company Number: FR-PFIZER INC-2019104828

PATIENT
  Age: 81 Year
  Sex: Male

DRUGS (1)
  1. LORLATINIB [Suspect]
     Active Substance: LORLATINIB
     Indication: ADENOCARCINOMA
     Dosage: 100 MG, UNK
     Dates: start: 20180516, end: 20181119

REACTIONS (3)
  - Hyperglycaemia [Unknown]
  - Dyslipidaemia [Unknown]
  - Pulmonary arterial hypertension [Unknown]
